FAERS Safety Report 8234530-1 (Version None)
Quarter: 2012Q1

REPORT INFORMATION
  Report Type: 
  Country: None (occurrence: None)
  Receive Date: 20120326
  Receipt Date: 20120320
  Transmission Date: 20120608
  Serious: Yes (Death, Other)
  Sender: FDA-Public Use
  Company Number: AU-JNJFOC-20120311068

PATIENT

DRUGS (8)
  1. VORICONAZOLE [Suspect]
     Indication: ANTIFUNGAL PROPHYLAXIS
     Route: 065
  2. NEUPOGEN [Concomitant]
     Indication: PROPHYLAXIS
     Route: 065
  3. FLUCONAZOLE [Suspect]
     Indication: ANTIFUNGAL PROPHYLAXIS
     Route: 065
  4. VORICONAZOLE [Suspect]
     Indication: ANTIFUNGAL PROPHYLAXIS
     Route: 048
  5. CYTARABINE [Suspect]
     Indication: ACUTE MYELOID LEUKAEMIA
     Route: 065
  6. ITRACONAZOLE [Suspect]
     Indication: ANTIFUNGAL PROPHYLAXIS
     Route: 048
  7. ANTHRACYCLINE [Suspect]
     Indication: ACUTE MYELOID LEUKAEMIA
     Route: 065
  8. PROTON PUMP INHIBITOR [Concomitant]
     Indication: PROPHYLAXIS AGAINST GASTROINTESTINAL ULCER
     Route: 065

REACTIONS (6)
  - SYSTEMIC MYCOSIS [None]
  - DEATH [None]
  - GASTROINTESTINAL DISORDER [None]
  - LUNG INFECTION [None]
  - LIVER FUNCTION TEST ABNORMAL [None]
  - DRUG EFFECT DECREASED [None]
